FAERS Safety Report 25306871 (Version 3)
Quarter: 2025Q2

REPORT INFORMATION
  Report Type: Report from Study
  Country: DE (occurrence: DE)
  Receive Date: 20250513
  Receipt Date: 20250627
  Transmission Date: 20250717
  Serious: Yes (Other)
  Sender: TEVA
  Company Number: DE-002147023-NVSC2025DE060777

PATIENT
  Sex: Female
  Weight: 75 kg

DRUGS (2)
  1. ANASTROZOLE [Suspect]
     Active Substance: ANASTROZOLE
     Indication: Hormone receptor positive HER2 negative breast cancer
     Dosage: 1 MG, QD
     Route: 065
     Dates: start: 20250305
  2. KISQALI [Suspect]
     Active Substance: RIBOCICLIB SUCCINATE
     Indication: Hormone receptor positive HER2 negative breast cancer
     Dosage: 200 MG, QD (200 MG, QD (21 DAYS DAILY INTAKE, 7 DAYS PAUSE))
     Route: 065
     Dates: start: 20250305

REACTIONS (4)
  - Aspartate aminotransferase increased [Recovering/Resolving]
  - Blood lactate dehydrogenase increased [Recovering/Resolving]
  - Alanine aminotransferase increased [Recovering/Resolving]
  - Nausea [Unknown]

NARRATIVE: CASE EVENT DATE: 20250409
